FAERS Safety Report 9182170 (Version 1)
Quarter: 2013Q1

REPORT INFORMATION
  Report Type: Spontaneous
  Country: US (occurrence: None)
  Receive Date: 20120622
  Receipt Date: 20120622
  Transmission Date: 20140127
  Serious: Yes (Other)
  Sender: FDA-Public Use
  Company Number: QSC-2011-0142

PATIENT
  Age: 44 Year
  Sex: Male

DRUGS (6)
  1. H.P. ACTHAR GEL [Suspect]
     Indication: MULTIPLE SCLEROSIS
     Dosage: 2X
     Dates: start: 20111122, end: 20111205
  2. TOPMAX (TOPIRAMATE) [Concomitant]
  3. AMITRIPTYLINE (AMITRIPTYLINE) [Concomitant]
  4. AMBIEN (ZOLPIDEM TARTRATE) [Concomitant]
  5. GABAPENTIN (GABAPENTIN) [Concomitant]
  6. TEGRETOL (CARBAMAZEPINE) UNKNOWN [Concomitant]

REACTIONS (5)
  - Blood glucose increased [None]
  - Thirst [None]
  - Polyuria [None]
  - Feeling abnormal [None]
  - Dehydration [None]
